FAERS Safety Report 7396269-4 (Version None)
Quarter: 2011Q2

REPORT INFORMATION
  Report Type: 
  Country: None (occurrence: None)
  Receive Date: 20110406
  Receipt Date: 20110330
  Transmission Date: 20111010
  Serious: Yes (Death, Life-Threatening)
  Sender: FDA-Public Use
  Company Number: DE-JNJFOC-20110208268

PATIENT
  Age: 84 Year
  Sex: Male

DRUGS (14)
  1. DIGIMERCK [Concomitant]
     Route: 048
  2. ASPIRIN [Concomitant]
     Route: 048
  3. CLEXANE [Concomitant]
     Route: 058
  4. RISPERDAL [Suspect]
     Route: 048
  5. GLIMEPIRIDE [Concomitant]
     Route: 048
  6. OXAZEPAM [Suspect]
     Indication: PRODUCT USED FOR UNKNOWN INDICATION
     Route: 048
  7. HYDROCHLOROTHIAZIDE [Concomitant]
     Route: 048
  8. RISPERDAL [Suspect]
     Indication: PRODUCT USED FOR UNKNOWN INDICATION
     Route: 048
  9. LORZAAR [Concomitant]
     Route: 048
  10. DIPIPERON [Suspect]
     Route: 048
  11. CONCOR [Concomitant]
     Route: 048
  12. AMLODIPINE [Concomitant]
     Route: 048
  13. DIPIPERON [Suspect]
     Indication: PRODUCT USED FOR UNKNOWN INDICATION
     Route: 048
  14. MAGNESIUM [Concomitant]
     Route: 048

REACTIONS (1)
  - RESPIRATORY FAILURE [None]
